FAERS Safety Report 18252090 (Version 3)
Quarter: 2021Q1

REPORT INFORMATION
  Report Type: Spontaneous
  Country: US (occurrence: US)
  Receive Date: 20200910
  Receipt Date: 20210315
  Transmission Date: 20210419
  Serious: No
  Sender: FDA-Public Use
  Company Number: US-FARMAPROD-202004-0482

PATIENT
  Sex: Female

DRUGS (1)
  1. OXERVATE [Suspect]
     Active Substance: CENEGERMIN-BKBJ
     Indication: NEUROTROPHIC KERATOPATHY
     Route: 047
     Dates: start: 20200403

REACTIONS (4)
  - Ocular discomfort [Unknown]
  - Therapy interrupted [Unknown]
  - Eyelid pain [Unknown]
  - Visual impairment [Unknown]
